FAERS Safety Report 10785377 (Version 1)
Quarter: 2015Q1

REPORT INFORMATION
  Report Type: Spontaneous
  Country: GB (occurrence: GB)
  Receive Date: 20150211
  Receipt Date: 20150211
  Transmission Date: 20150721
  Serious: Yes (Other)
  Sender: FDA-Public Use
  Company Number: PHHY2014GB163710

PATIENT
  Age: 74 Year
  Sex: Female
  Weight: 55 kg

DRUGS (15)
  1. ONDANSETRON [Concomitant]
     Active Substance: ONDANSETRON
     Indication: NAUSEA
     Dosage: 4 MG, BID (OCCASIONALLY)
     Route: 048
     Dates: start: 2014
  2. LORATADINE. [Concomitant]
     Active Substance: LORATADINE
     Indication: SEASONAL ALLERGY
     Dosage: 10 MG, WHEN REQUIRED
     Route: 048
     Dates: end: 201410
  3. VISCOTEARS [Concomitant]
     Active Substance: CARBOMER
     Indication: DRY EYE
     Dosage: 3 TO 4, DAILY
     Route: 047
  4. OMEPRAZOLE. [Suspect]
     Active Substance: OMEPRAZOLE
     Indication: GASTROOESOPHAGEAL REFLUX DISEASE
     Dosage: 20 MG, QD  IN MORNING
     Route: 048
     Dates: start: 2007
  5. LIPITOR [Concomitant]
     Active Substance: ATORVASTATIN CALCIUM
     Indication: BLOOD CHOLESTEROL INCREASED
     Dosage: 10 MG, QD
     Route: 048
     Dates: start: 201308
  6. STUGERON [Concomitant]
     Active Substance: CINNARIZINE
     Indication: MOTION SICKNESS
     Dosage: 15 MG, UNK
     Route: 048
     Dates: start: 2011
  7. MEBEVERINE [Concomitant]
     Active Substance: MEBEVERINE
     Indication: ABDOMINAL PAIN UPPER
     Dosage: 135 MG, TID
     Route: 048
  8. SUMATRIPTAN. [Concomitant]
     Active Substance: SUMATRIPTAN
     Indication: MIGRAINE
     Dosage: 50 MG, WHEN REQUIRED
     Route: 048
  9. COLOFAC [Concomitant]
     Active Substance: MEBEVERINE HYDROCHLORIDE
     Indication: IRRITABLE BOWEL SYNDROME
     Dosage: 135 MG, TID
     Route: 048
     Dates: start: 2010
  10. OMEPRAZOLE. [Suspect]
     Active Substance: OMEPRAZOLE
     Dosage: 10 MG, WHEN REQUIRED AT NIGHT
     Route: 048
  11. VITAMIN D [Concomitant]
     Active Substance: CHOLECALCIFEROL
     Indication: BONE DISORDER
     Dosage: UNK
     Route: 065
  12. SUMATRIPTAN. [Concomitant]
     Active Substance: SUMATRIPTAN
     Dosage: 100 MG, WHEN REQUIRED
     Route: 048
  13. VITAMIN D [Concomitant]
     Active Substance: CHOLECALCIFEROL
     Dosage: 10 MG, QD
     Route: 048
     Dates: start: 2013
  14. BECONASE AQ [Concomitant]
     Active Substance: BECLOMETHASONE DIPROPIONATE MONOHYDRATE
     Indication: SEASONAL ALLERGY
     Dosage: UNK
     Route: 045
     Dates: end: 201410
  15. STEMETIL//PROCHLORPERAZINE EDISYLATE [Concomitant]
     Indication: MENIERE^S DISEASE
     Dosage: 5 MG, UNK
     Route: 048

REACTIONS (4)
  - Polyp [Not Recovered/Not Resolved]
  - Gastritis [Not Recovered/Not Resolved]
  - Dysgeusia [Unknown]
  - Tongue discolouration [Unknown]

NARRATIVE: CASE EVENT DATE: 2014
